FAERS Safety Report 9296902 (Version 1)
Quarter: 2013Q2

REPORT INFORMATION
  Report Type: Spontaneous
  Country: US (occurrence: US)
  Receive Date: 20130517
  Receipt Date: 20130517
  Transmission Date: 20140414
  Serious: Yes (Other)
  Sender: FDA-Public Use
  Company Number: US-009507513-1305USA009334

PATIENT
  Age: 65 Year
  Sex: Female

DRUGS (1)
  1. FOSAMAX [Suspect]
     Indication: OSTEOPOROSIS
     Dosage: EACH WEEK
     Route: 048
     Dates: start: 2002, end: 2004

REACTIONS (5)
  - Cholecystectomy [Unknown]
  - Abdominal discomfort [Recovering/Resolving]
  - Cholelithiasis [Recovered/Resolved]
  - Pain [Recovered/Resolved]
  - Gastric disorder [Recovering/Resolving]
